FAERS Safety Report 8345883-8 (Version None)
Quarter: 2012Q2

REPORT INFORMATION
  Report Type: 
  Country: None (occurrence: None)
  Receive Date: 20120509
  Receipt Date: 20120501
  Transmission Date: 20120825
  Serious: No
  Sender: FDA-Public Use
  Company Number: US-BIOGENIDEC-2012BI015448

PATIENT
  Sex: Female

DRUGS (1)
  1. TYSABRI [Suspect]
     Indication: MULTIPLE SCLEROSIS
     Route: 042
     Dates: start: 20100713

REACTIONS (9)
  - ARTHRALGIA [None]
  - FATIGUE [None]
  - MUSCLE SPASMS [None]
  - HAIR COLOUR CHANGES [None]
  - THYROID DISORDER [None]
  - FALL [None]
  - VITAMIN D DECREASED [None]
  - PAIN IN EXTREMITY [None]
  - WEIGHT INCREASED [None]
